FAERS Safety Report 9463928 (Version 2)
Quarter: 2013Q3

REPORT INFORMATION
  Report Type: Spontaneous
  Country: IT (occurrence: IT)
  Receive Date: 20130819
  Receipt Date: 20130830
  Transmission Date: 20140515
  Serious: Yes (Death, Hospitalization, Other)
  Sender: FDA-Public Use
  Company Number: IT-009507513-1308ITA003461

PATIENT
  Age: 68 Year
  Sex: Female

DRUGS (1)
  1. TEMODAL [Suspect]
     Indication: GLIOBLASTOMA
     Dosage: 250 MG DAILY, FORMULATION REPORTED TABLET
     Route: 048
     Dates: start: 20130704, end: 20130708

REACTIONS (3)
  - Pancytopenia [Fatal]
  - Purpura [Fatal]
  - Ecchymosis [Fatal]
